FAERS Safety Report 10741993 (Version 2)
Quarter: 2015Q3

REPORT INFORMATION
  Report Type: Report from Study
  Country: US (occurrence: US)
  Receive Date: 20150127
  Receipt Date: 20150722
  Transmission Date: 20151125
  Serious: Yes (Hospitalization, Other)
  Sender: FDA-Public Use
  Company Number: US-GILEAD-2015-0133692

PATIENT
  Age: 64 Year
  Sex: Female

DRUGS (3)
  1. AMBRISENTAN [Suspect]
     Active Substance: AMBRISENTAN
     Indication: PULMONARY HYPERTENSION
     Dosage: 5 MG, QD
     Route: 065
     Dates: start: 20111130
  2. AMBRISENTAN [Suspect]
     Active Substance: AMBRISENTAN
     Indication: UNEVALUABLE EVENT
  3. TYVASO [Concomitant]
     Active Substance: TREPROSTINIL

REACTIONS (5)
  - Pain [Unknown]
  - Cough [Unknown]
  - Thrombosis [Unknown]
  - Herpes zoster [Unknown]
  - Pneumonia [Unknown]
